FAERS Safety Report 17314901 (Version 1)
Quarter: 2020Q1

REPORT INFORMATION
  Report Type: Spontaneous
  Country: US (occurrence: US)
  Receive Date: 20200108
  Receipt Date: 20200108
  Transmission Date: 20200409
  Serious: Yes (Hospitalization)
  Sender: FDA-Public Use
  Company Number: None

PATIENT
  Sex: Male
  Weight: 108 kg

DRUGS (6)
  1. VINCRISTINE [Concomitant]
     Active Substance: VINCRISTINE
     Dates: end: 20181116
  2. DOXORUBICIN HYDROCHLORIDE. [Concomitant]
     Active Substance: DOXORUBICIN HYDROCHLORIDE
     Dates: end: 20181116
  3. METHOTREXATE. [Concomitant]
     Active Substance: METHOTREXATE
     Dates: end: 20181102
  4. CYTARABINE. [Concomitant]
     Active Substance: CYTARABINE
     Dates: end: 20181223
  5. ONCASPAR [Concomitant]
     Active Substance: PEGASPARGASE
     Dates: end: 20181106
  6. CYCLOPHOSPHAMIDE. [Suspect]
     Active Substance: CYCLOPHOSPHAMIDE
     Dates: start: 20180205, end: 20181214

REACTIONS (10)
  - Dyspnoea [None]
  - Rhinorrhoea [None]
  - Productive cough [None]
  - Increased tendency to bruise [None]
  - Gingival bleeding [None]
  - Pyrexia [None]
  - Neutropenia [None]
  - Chills [None]
  - Malaise [None]
  - Oropharyngeal pain [None]

NARRATIVE: CASE EVENT DATE: 20191228
